FAERS Safety Report 23494609 (Version 1)
Quarter: 2024Q1

REPORT INFORMATION
  Report Type: Spontaneous
  Country: US (occurrence: None)
  Receive Date: 20240206
  Receipt Date: 20240206
  Transmission Date: 20240410
  Serious: Yes (Disabling)
  Sender: FDA-Public Use
  Company Number: None

PATIENT
  Age: 69 Year
  Sex: Female
  Weight: 67.5 kg

DRUGS (15)
  1. RYBELSUS [Suspect]
     Active Substance: SEMAGLUTIDE
     Indication: Glycosylated haemoglobin
     Dosage: OTHER QUANTITY : 1 TABLET(S);?
     Route: 048
     Dates: start: 20231115
  2. DOXYCYCLINE [Concomitant]
     Active Substance: DOXYCYCLINE
  3. ESTRADIOL [Concomitant]
     Active Substance: ESTRADIOL
  4. HYDROCODONE [Concomitant]
     Active Substance: HYDROCODONE
  5. Levithyroxine [Concomitant]
  6. MECLIZINE [Concomitant]
     Active Substance: MECLIZINE HYDROCHLORIDE
  7. REMERON [Concomitant]
     Active Substance: MIRTAZAPINE
  8. LOSARTAN [Concomitant]
     Active Substance: LOSARTAN
  9. POTASSIUM [Concomitant]
     Active Substance: POTASSIUM
  10. COGNIUM [Concomitant]
  11. ZINC [Concomitant]
     Active Substance: PYRITHIONE ZINC\ZINC\ZINC CHLORIDE
  12. FOLIC ACID [Concomitant]
     Active Substance: FOLIC ACID
  13. NAPROXEN [Concomitant]
     Active Substance: NAPROXEN
  14. Famotdine [Concomitant]
  15. COGNIUM [Concomitant]

REACTIONS (6)
  - Pain in extremity [None]
  - Pain in extremity [None]
  - Gait disturbance [None]
  - Decreased appetite [None]
  - Weight decreased [None]
  - Abdominal pain upper [None]

NARRATIVE: CASE EVENT DATE: 20240101
